FAERS Safety Report 9632220 (Version 1)
Quarter: 2013Q4

REPORT INFORMATION
  Report Type: Spontaneous
  Country: AU (occurrence: None)
  Receive Date: 20131016
  Receipt Date: 20131016
  Transmission Date: 20140711
  Serious: Yes (Other)
  Sender: FDA-Public Use
  Company Number: SYM-2013-11537

PATIENT
  Sex: Female

DRUGS (6)
  1. CARDIZEM [Suspect]
     Indication: PRODUCT USED FOR UNKNOWN INDICATION
  2. LITHICARB [Suspect]
  3. BRUFEN [Suspect]
  4. DILANTIN [Suspect]
  5. MODECATE [Suspect]
  6. VALPRO [Suspect]

REACTIONS (6)
  - Diabetes insipidus [None]
  - Hyperchloraemia [None]
  - Hypernatraemia [None]
  - Hypokalaemia [None]
  - Polydipsia [None]
  - Polyuria [None]
